FAERS Safety Report 20087963 (Version 1)
Quarter: 2021Q4

REPORT INFORMATION
  Report Type: Spontaneous
  Country: PL (occurrence: PL)
  Receive Date: 20211118
  Receipt Date: 20211118
  Transmission Date: 20220303
  Serious: Yes (Other)
  Sender: FDA-Public Use
  Company Number: PL-Otsuka-DJ20113848

PATIENT
  Age: 20 Year
  Sex: Male

DRUGS (3)
  1. ABILIFY [Suspect]
     Active Substance: ARIPIPRAZOLE
     Indication: Mental disorder
     Dosage: 15 MG, UNK
     Route: 065
  2. TRAZODONE HCL [Suspect]
     Active Substance: TRAZODONE HYDROCHLORIDE
     Indication: Product used for unknown indication
     Dosage: UNK
     Route: 065
  3. VALPROATE [Suspect]
     Active Substance: VALPROIC ACID
     Indication: Product used for unknown indication
     Dosage: UNK
     Route: 065

REACTIONS (6)
  - Respiratory tract infection [Unknown]
  - Nasopharyngitis [Unknown]
  - Nervousness [Unknown]
  - Akathisia [Unknown]
  - Insomnia [Recovering/Resolving]
  - Drug ineffective [Unknown]
